FAERS Safety Report 4725268-3 (Version None)
Quarter: 2005Q3

REPORT INFORMATION
  Report Type: 
  Country: None (occurrence: None)
  Receive Date: 20050725
  Receipt Date: 20050713
  Transmission Date: 20060218
  Serious: Yes (Other)
  Sender: FDA-Public Use
  Company Number: 2005099969

PATIENT
  Age: 4 Year
  Sex: Female
  Weight: 15.8759 kg

DRUGS (1)
  1. BENADRYL [Suspect]
     Indication: ACCIDENTAL EXPOSURE
     Dosage: 10 TABS ONCE, ORAL
     Route: 048
     Dates: start: 20050713, end: 20050713

REACTIONS (4)
  - ACCIDENTAL DRUG INTAKE BY CHILD [None]
  - ACCIDENTAL OVERDOSE [None]
  - DYSPNOEA [None]
  - MOOD ALTERED [None]
